FAERS Safety Report 7546524-X (Version None)
Quarter: 2011Q2

REPORT INFORMATION
  Report Type: 
  Country: None (occurrence: None)
  Receive Date: 20110607
  Receipt Date: 20110523
  Transmission Date: 20111010
  Serious: Yes (Hospitalization)
  Sender: FDA-Public Use
  Company Number: 2011MA006236

PATIENT
  Age: 74 Year
  Sex: Female

DRUGS (3)
  1. DONEPEZIL HCL [Concomitant]
  2. HALOPERIDOL LACTATE [Suspect]
     Indication: PARKINSONISM
     Dosage: 1.5 MG,
  3. RISPERIDONE [Concomitant]

REACTIONS (4)
  - HALLUCINATION, VISUAL [None]
  - PARKINSONISM [None]
  - DELUSION [None]
  - DISEASE RECURRENCE [None]
